FAERS Safety Report 6613520-6 (Version None)
Quarter: 2010Q1

REPORT INFORMATION
  Report Type: 
  Country: None (occurrence: None)
  Receive Date: 20100304
  Receipt Date: 20100217
  Transmission Date: 20100710
  Serious: Yes (Death, Hospitalization)
  Sender: FDA-Public Use
  Company Number: JP-AMGEN-US395964

PATIENT
  Sex: Female
  Weight: 46 kg

DRUGS (10)
  1. ENBREL [Suspect]
     Indication: RHEUMATOID ARTHRITIS
     Route: 058
     Dates: start: 20090202, end: 20090319
  2. RHEUMATREX [Suspect]
     Indication: RHEUMATOID ARTHRITIS
     Route: 048
     Dates: start: 20040101, end: 20090109
  3. INFLIXIMAB [Suspect]
     Indication: RHEUMATOID ARTHRITIS
     Route: 051
     Dates: start: 20050101, end: 20081113
  4. CALCIUM LACTATE [Concomitant]
     Indication: OSTEOPOROSIS
     Route: 048
  5. DEPAS [Concomitant]
     Indication: INSOMNIA
     Route: 048
  6. GASTER [Concomitant]
     Indication: GASTRITIS
     Route: 048
  7. ULGUT [Concomitant]
     Indication: GASTRITIS
     Route: 048
  8. NICERGOLINE [Concomitant]
     Indication: CEREBRAL INFARCTION
     Route: 048
  9. ASPIRIN [Concomitant]
     Route: 048
  10. ALFAROL [Concomitant]
     Indication: OSTEOPOROSIS
     Route: 048

REACTIONS (3)
  - EPSTEIN-BARR VIRUS TEST POSITIVE [None]
  - HISTIOCYTOSIS HAEMATOPHAGIC [None]
  - LYMPHOMA [None]
